FAERS Safety Report 9551787 (Version 1)
Quarter: 2013Q3

REPORT INFORMATION
  Report Type: Spontaneous
  Country: US (occurrence: US)
  Receive Date: 20130925
  Receipt Date: 20130925
  Transmission Date: 20140515
  Serious: No
  Sender: FDA-Public Use
  Company Number: US-BAYER-2013-115659

PATIENT
  Age: 50 Year
  Sex: Female
  Weight: 56.69 kg

DRUGS (3)
  1. ALEVE TABLET [Suspect]
     Indication: TOOTHACHE
     Dosage: 2 DF, BID
     Route: 048
     Dates: start: 20130917, end: 20130917
  2. MECLIZINE [Concomitant]
  3. TRAMADOL [Concomitant]

REACTIONS (2)
  - Swelling face [Not Recovered/Not Resolved]
  - Extra dose administered [None]
